FAERS Safety Report 23629127 (Version 1)
Quarter: 2024Q1

REPORT INFORMATION
  Report Type: Spontaneous
  Country: US (occurrence: US)
  Receive Date: 20240313
  Receipt Date: 20240313
  Transmission Date: 20240409
  Serious: No
  Sender: FDA-Public Use
  Company Number: US-OAKRUM PHARMA-2023OAK00004

PATIENT
  Sex: Male
  Weight: 108.84 kg

DRUGS (3)
  1. PYRIMETHAMINE [Suspect]
     Active Substance: PYRIMETHAMINE
     Indication: Toxoplasmosis
     Dosage: 75 MG, 1X/DAY
  2. BYSTOLIC [Concomitant]
     Active Substance: NEBIVOLOL HYDROCHLORIDE
     Dosage: 5 MG, 1X/DAY
  3. REXULTI [Concomitant]
     Active Substance: BREXPIPRAZOLE
     Dosage: 3 MG

REACTIONS (2)
  - Nausea [Unknown]
  - Off label use [Not Recovered/Not Resolved]
